FAERS Safety Report 8444464-5 (Version None)
Quarter: 2012Q2

REPORT INFORMATION
  Report Type: 
  Country: None (occurrence: None)
  Receive Date: 20120618
  Receipt Date: 20120613
  Transmission Date: 20120825
  Serious: Yes (Hospitalization, Other)
  Sender: FDA-Public Use
  Company Number: BR-PFIZER INC-2012142556

PATIENT
  Age: 63 Year
  Sex: Male
  Weight: 67 kg

DRUGS (4)
  1. PREDNISONE [Concomitant]
     Indication: NEOPLASM MALIGNANT
     Dosage: ONE TABLET DAILY
  2. CITALOPRAM [Concomitant]
     Indication: ANXIETY
     Dosage: 20 MG, 1X/DAY
  3. TOLTERODINE TARTRATE [Suspect]
     Dosage: 4 MG, 1X/DAY
     Route: 048
     Dates: start: 20110330, end: 20120528
  4. KETOCONAZOLE [Concomitant]
     Indication: NEOPLASM MALIGNANT
     Dosage: THREE TABLETS DAILY
     Dates: start: 20110501

REACTIONS (3)
  - INFARCTION [None]
  - ARTERIAL OCCLUSIVE DISEASE [None]
  - DIABETES MELLITUS [None]
